FAERS Safety Report 17984243 (Version 1)
Quarter: 2020Q3

REPORT INFORMATION
  Report Type: Spontaneous
  Country: US (occurrence: US)
  Receive Date: 20200706
  Receipt Date: 20200706
  Transmission Date: 20201103
  Serious: No
  Sender: FDA-Public Use
  Company Number: US-ASTRAZENECA-2020SE76464

PATIENT
  Sex: Male
  Weight: 87.5 kg

DRUGS (4)
  1. BYDUREON BCISE [Suspect]
     Active Substance: EXENATIDE
     Indication: BLOOD GLUCOSE INCREASED
     Route: 065
     Dates: start: 20200425
  2. METFORMIN [Concomitant]
     Active Substance: METFORMIN HYDROCHLORIDE
     Indication: DIABETES MELLITUS
  3. MILARALAX [Concomitant]
     Indication: CONSTIPATION
     Dosage: EVERY DAY
  4. BENEFIBER [Concomitant]
     Active Substance: STARCH, WHEAT
     Indication: CONSTIPATION

REACTIONS (10)
  - Nausea [Unknown]
  - Constipation [Unknown]
  - Injection site erythema [Recovered/Resolved]
  - Irritable bowel syndrome [Unknown]
  - Vomiting [Unknown]
  - Weight decreased [Unknown]
  - Injection site nodule [Not Recovered/Not Resolved]
  - Vomiting [Unknown]
  - Decreased appetite [Unknown]
  - Asthenia [Unknown]

NARRATIVE: CASE EVENT DATE: 20200609
